FAERS Safety Report 21350569 (Version 8)
Quarter: 2023Q1

REPORT INFORMATION
  Report Type: Spontaneous
  Country: JP (occurrence: JP)
  Receive Date: 20220919
  Receipt Date: 20230317
  Transmission Date: 20230417
  Serious: Yes (Hospitalization, Other)
  Sender: FDA-Public Use
  Company Number: JP-ONO-2022JP024581

PATIENT
  Age: 46 Year
  Sex: Male
  Weight: 60 kg

DRUGS (11)
  1. MEKTOVI [Suspect]
     Active Substance: BINIMETINIB
     Indication: Colon cancer
     Dosage: 45 MG, Q12H
     Route: 048
     Dates: start: 20220823, end: 20220912
  2. MEKTOVI [Suspect]
     Active Substance: BINIMETINIB
     Dosage: 30 MG, Q12H
     Route: 048
     Dates: start: 20220927, end: 20221231
  3. MEKTOVI [Suspect]
     Active Substance: BINIMETINIB
     Dosage: 30 MG, Q12H
     Route: 048
     Dates: start: 20230110, end: 20230221
  4. BRAFTOVI [Suspect]
     Active Substance: ENCORAFENIB
     Indication: Colon cancer
     Dosage: 300 MG, EVERYDAY
     Route: 048
     Dates: start: 20220823, end: 20220912
  5. BRAFTOVI [Suspect]
     Active Substance: ENCORAFENIB
     Dosage: 225 MG, EVERYDAY
     Route: 048
     Dates: start: 20220927, end: 20221231
  6. BRAFTOVI [Suspect]
     Active Substance: ENCORAFENIB
     Dosage: 225 MG, EVERYDAY
     Route: 048
     Dates: start: 20230110, end: 20230221
  7. CETUXIMAB [Suspect]
     Active Substance: CETUXIMAB
     Indication: Colon cancer
     Dosage: 400 MG/M2
     Route: 065
     Dates: start: 20220823, end: 20220823
  8. CETUXIMAB [Suspect]
     Active Substance: CETUXIMAB
     Dosage: 250 MG/M2
     Route: 065
     Dates: start: 20220830, end: 20220906
  9. ERBITUX [Concomitant]
     Active Substance: CETUXIMAB
     Indication: Colon cancer
     Dosage: 400 MG
     Route: 041
     Dates: start: 20220823, end: 20220823
  10. ERBITUX [Concomitant]
     Active Substance: CETUXIMAB
     Dosage: 400 MG, QW
     Route: 041
     Dates: start: 20220927, end: 20221227
  11. ERBITUX [Concomitant]
     Active Substance: CETUXIMAB
     Dosage: 400 MG, QW
     Route: 041
     Dates: start: 20230110, end: 20230214

REACTIONS (7)
  - Macular detachment [Recovering/Resolving]
  - Cerebral haemorrhage [Unknown]
  - Intracranial tumour haemorrhage [Recovering/Resolving]
  - Neoplasm progression [Unknown]
  - COVID-19 [Not Recovered/Not Resolved]
  - Acne [Recovering/Resolving]
  - Acne [Not Recovered/Not Resolved]

NARRATIVE: CASE EVENT DATE: 20220830
